FAERS Safety Report 15253505 (Version 1)
Quarter: 2018Q3

REPORT INFORMATION
  Report Type: Spontaneous
  Country: FR (occurrence: FR)
  Receive Date: 20180808
  Receipt Date: 20180808
  Transmission Date: 20181010
  Serious: Yes (Other)
  Sender: FDA-Public Use
  Company Number: FR-AUROBINDO-AUR-APL-2018-039196

PATIENT
  Age: 60 Year
  Sex: Male
  Weight: 73 kg

DRUGS (3)
  1. PARACETAMOL [Suspect]
     Active Substance: ACETAMINOPHEN
     Indication: INTENTIONAL OVERDOSE
     Dosage: 8 GRAM, IN TOTAL
     Route: 048
     Dates: start: 20180717, end: 20180717
  2. IXPRIM [Suspect]
     Active Substance: ACETAMINOPHEN\TRAMADOL HYDROCHLORIDE
     Indication: INTENTIONAL OVERDOSE
     Dosage: 50 DOSAGE FORM, IN TOTAL
     Route: 048
     Dates: start: 20180717, end: 20180717
  3. LAMALINE                           /00764901/ [Suspect]
     Active Substance: ACETAMINOPHEN\BELLADONNA LEAF\CAFFEINE\OPIUM
     Indication: INTENTIONAL OVERDOSE
     Dosage: 32 DOSAGE FORM, IN TOTAL
     Route: 048
     Dates: start: 20180717, end: 20180717

REACTIONS (4)
  - Analgesic drug level increased [Recovering/Resolving]
  - Miosis [Recovered/Resolved]
  - Vomiting [Recovered/Resolved]
  - Poisoning deliberate [Recovered/Resolved]

NARRATIVE: CASE EVENT DATE: 20180717
